FAERS Safety Report 4428464-8 (Version None)
Quarter: 2004Q3

REPORT INFORMATION
  Report Type: 
  Country: None (occurrence: None)
  Receive Date: 20040813
  Receipt Date: 20040802
  Transmission Date: 20050211
  Serious: Yes (Death)
  Sender: FDA-Public Use
  Company Number: 2004AP03986

PATIENT
  Age: 30 Year
  Sex: Female

DRUGS (4)
  1. XYLOCAINE [Suspect]
     Indication: ANAESTHESIA
     Dosage: 40 ML ONCE
  2. NO MATCH [Concomitant]
  3. SEDATIVE MEDICINE [Concomitant]
  4. SEDATIVE HYPNOTIC [Concomitant]

REACTIONS (3)
  - CARDIAC ARREST [None]
  - POST PROCEDURAL PAIN [None]
  - RESPIRATORY ARREST [None]
